FAERS Safety Report 7669647-3 (Version None)
Quarter: 2011Q3

REPORT INFORMATION
  Report Type: 
  Country: None (occurrence: None)
  Receive Date: 20110808
  Receipt Date: 20110803
  Transmission Date: 20111222
  Serious: Yes (Death, Hospitalization)
  Sender: FDA-Public Use
  Company Number: PHHY2011EC70265

PATIENT
  Sex: Female

DRUGS (1)
  1. DIOVAN HCT [Suspect]
     Indication: HYPERTENSION
     Dosage: 160 MG VALSARTAN AND 12.5 MG OF HYDROCHLOROTHIAZIDE, DAILY
     Route: 048
     Dates: start: 20080312, end: 20110225

REACTIONS (3)
  - DEATH [None]
  - ACCIDENT [None]
  - HIP FRACTURE [None]
